FAERS Safety Report 9233363 (Version 2)
Quarter: 2013Q2

REPORT INFORMATION
  Report Type: Spontaneous
  Country: JP (occurrence: None)
  Receive Date: 20130415
  Receipt Date: 20130417
  Transmission Date: 20140414
  Serious: Yes (Hospitalization)
  Sender: FDA-Public Use
  Company Number: TCI2013A01814

PATIENT
  Age: 45 Year
  Sex: Male

DRUGS (7)
  1. NESINA [Suspect]
     Indication: TYPE 2 DIABETES MELLITUS
     Dosage: 25 MG, 1 IN 1 D
     Route: 048
     Dates: start: 20130220, end: 20130328
  2. NESINA [Suspect]
     Dosage: 25 MG, 1 IN 1 D
     Route: 048
     Dates: start: 20130220, end: 20130328
  3. PAXIL (PAROXETINE HYDROCHLORIDE) [Concomitant]
  4. SOLANAX (ALPRAZOLAM) [Concomitant]
  5. RISPERDAL (RISPERIDONE) [Concomitant]
  6. MEVAN (PRAVASTATIN SODIUM) [Concomitant]
  7. INVEGA (PALIPERIDONE) [Concomitant]

REACTIONS (2)
  - Pancreatitis acute [None]
  - Ascites [None]
